FAERS Safety Report 6226084-6 (Version None)
Quarter: 2009Q2

REPORT INFORMATION
  Report Type: 
  Country: None (occurrence: None)
  Receive Date: 20090612
  Receipt Date: 20090507
  Transmission Date: 20091009
  Serious: No
  Sender: FDA-Public Use
  Company Number: US-ABBOTT-09P-163-0572398-00

PATIENT
  Sex: Female
  Weight: 71.732 kg

DRUGS (1)
  1. HUMIRA [Suspect]
     Indication: PSORIASIS
     Route: 058
     Dates: start: 20080901

REACTIONS (2)
  - DRUG DOSE OMISSION [None]
  - PSORIASIS [None]
